FAERS Safety Report 7669367-5 (Version None)
Quarter: 2011Q3

REPORT INFORMATION
  Report Type: 
  Country: None (occurrence: None)
  Receive Date: 20110808
  Receipt Date: 20110729
  Transmission Date: 20111222
  Serious: Yes (Other)
  Sender: FDA-Public Use
  Company Number: FR-ROCHE-779711

PATIENT
  Sex: Female
  Weight: 94 kg

DRUGS (1)
  1. MIRCERA [Suspect]
     Route: 065
     Dates: start: 20110521

REACTIONS (2)
  - EXSANGUINATION [None]
  - MEDICAL DEVICE COMPLICATION [None]
